FAERS Safety Report 8728377 (Version 4)
Quarter: 2012Q4

REPORT INFORMATION
  Report Type: 
  Country: US (occurrence: US)
  Receive Date: 20120817
  Receipt Date: 20120926
  Transmission Date: 20130627
  Serious: Yes (Other)
  Sender: FDA-Public Use
  Company Number: US-JNJFOC-20120807143

PATIENT
  Sex: Female

DRUGS (21)
  1. IBUPROFEN [Suspect]
     Indication: PRODUCT USED FOR UNKNOWN INDICATION
     Route: 065
  2. MOTRIN IB [Suspect]
     Route: 065
  3. MOTRIN IB [Suspect]
     Indication: PRODUCT USED FOR UNKNOWN INDICATION
     Route: 065
  4. DILANTIN [Concomitant]
     Indication: CONVULSION
     Route: 065
  5. ALBUTEROL [Concomitant]
     Dosage: puffers as needed
     Route: 065
  6. ASPIRIN [Concomitant]
     Route: 065
  7. ATENOLOL [Concomitant]
     Route: 065
  8. LIPITOR [Concomitant]
     Route: 065
  9. CINRYZE [Concomitant]
     Dosage: infusion
     Route: 065
  10. FLEXERIL [Concomitant]
     Dosage: as needed
     Route: 065
  11. DANAZOL [Concomitant]
     Route: 065
  12. IRON SUPPLEMENT [Concomitant]
     Route: 065
  13. DILAUDID [Concomitant]
     Dosage: as needed
     Route: 065
  14. PREVACID [Concomitant]
     Dosage: mornings
     Route: 065
  15. ASMANEX [Concomitant]
     Route: 065
  16. NORTRIPTYLINE [Concomitant]
     Dosage: as needed at bedtime
     Route: 065
  17. MIRALAX [Concomitant]
     Dosage: as needed
     Route: 065
  18. ZOLOFT [Concomitant]
     Route: 065
  19. RESTORIL [Concomitant]
     Dosage: as needed
     Route: 065
  20. TRAZODONE [Concomitant]
     Dosage: as needed
     Route: 065
  21. COUMADIN [Concomitant]
     Indication: PULMONARY EMBOLISM
     Route: 065

REACTIONS (4)
  - Malaise [Recovered/Resolved]
  - Vomiting [Recovered/Resolved]
  - Rash [Unknown]
  - Abdominal discomfort [Unknown]
